FAERS Safety Report 11025720 (Version 1)
Quarter: 2015Q2

REPORT INFORMATION
  Report Type: Spontaneous
  Country: US (occurrence: US)
  Receive Date: 20150414
  Receipt Date: 20150414
  Transmission Date: 20150821
  Serious: No
  Sender: FDA-Public Use
  Company Number: US-ASTRAZENECA-2014SE24762

PATIENT
  Age: 58 Year
  Sex: Female
  Weight: 117.9 kg

DRUGS (3)
  1. OMEPRAZOLE OVER THE COUNTER [Suspect]
     Active Substance: OMEPRAZOLE
     Indication: GASTROOESOPHAGEAL REFLUX DISEASE
     Dosage: DAILY
     Route: 048
     Dates: start: 20140404
  2. NEXIUM [Suspect]
     Active Substance: ESOMEPRAZOLE MAGNESIUM
     Indication: ULCER
     Route: 048
     Dates: start: 2008
  3. TUMS [Concomitant]
     Active Substance: CALCIUM CARBONATE

REACTIONS (5)
  - Feeling jittery [Unknown]
  - Product use issue [Unknown]
  - Chest pain [Unknown]
  - Fatigue [Unknown]
  - Regurgitation [Unknown]

NARRATIVE: CASE EVENT DATE: 2008
